FAERS Safety Report 16056100 (Version 1)
Quarter: 2019Q2

REPORT INFORMATION
  Report Type: Spontaneous
  Country: US (occurrence: US)
  Receive Date: 20190308
  Receipt Date: 20190308
  Transmission Date: 20190711
  Serious: Yes (Hospitalization)
  Sender: FDA-Public Use
  Company Number: None

PATIENT
  Age: 63 Year
  Sex: Male
  Weight: 106.2 kg

DRUGS (14)
  1. CAFFEINE (PRN) [Concomitant]
     Dates: start: 20181115, end: 20181116
  2. OXYCODONE (PRN) [Concomitant]
     Dates: start: 20181112, end: 20190118
  3. VANCOMYCIN [Concomitant]
     Active Substance: VANCOMYCIN
     Dates: start: 20181117, end: 20181119
  4. BENADRYL (PRN) [Concomitant]
     Dates: start: 20181112, end: 20181115
  5. KYTRIL [Concomitant]
     Active Substance: GRANISETRON HYDROCHLORIDE
     Dates: start: 20181115, end: 20181122
  6. COMPAZINE [Concomitant]
     Active Substance: PROCHLORPERAZINE MALEATE
     Dates: start: 20181110, end: 20181112
  7. PANTOPRAZOLE [Concomitant]
     Active Substance: PANTOPRAZOLE
     Dates: start: 20181116, end: 20181122
  8. AMIDARONE [Concomitant]
     Active Substance: AMIODARONE
     Dates: start: 20181122, end: 20190217
  9. MEROPENEM. [Concomitant]
     Active Substance: MEROPENEM
     Dates: start: 20181114, end: 20181120
  10. ACYCLOVIR. [Concomitant]
     Active Substance: ACYCLOVIR
     Dates: start: 20181112, end: 20181120
  11. YESCARTA [Suspect]
     Active Substance: AXICABTAGENE CILOLEUCEL
     Indication: DIFFUSE LARGE B-CELL LYMPHOMA
     Dosage: ?          OTHER FREQUENCY:ONCE;?
     Route: 041
     Dates: start: 20181113
  12. ALTEPLASE. [Concomitant]
     Active Substance: ALTEPLASE
     Dates: start: 20181112, end: 20181118
  13. CRESEMBA [Concomitant]
     Active Substance: ISAVUCONAZONIUM SULFATE
     Dates: start: 20181117, end: 20181119
  14. TAMSULOSIN [Concomitant]
     Active Substance: TAMSULOSIN
     Dates: start: 20181112, end: 20181121

REACTIONS (2)
  - Cytokine release syndrome [None]
  - CAR T-cell-related encephalopathy syndrome [None]

NARRATIVE: CASE EVENT DATE: 20181117
